FAERS Safety Report 5315918-5 (Version None)
Quarter: 2007Q1

REPORT INFORMATION
  Report Type: 
  Country: None (occurrence: None)
  Receive Date: 20070130
  Receipt Date: 20061107
  Transmission Date: 20070707
  Serious: No
  Sender: FDA-Public Use
  Company Number: 200619125US

PATIENT
  Age: 57 Year
  Sex: Female

DRUGS (8)
  1. KETEK [Suspect]
     Indication: BRONCHITIS
     Dates: start: 20061101
  2. KETEK [Suspect]
     Indication: SINUSITIS
     Dates: start: 20061101
  3. RALOXIFENE HYDROCHLORIDE (EVISTA) [Concomitant]
  4. FLUTICASONE PROPIONATE, SALMETEROL XINAFOATE (ADVAIR) [Concomitant]
  5. .. [Concomitant]
  6. BUPROPION HYDROCHLORIDE (WELLBUTRIN XL) [Concomitant]
  7. LAMICTAL [Concomitant]
  8. ESZOPLICLONE (LUNESTA) [Concomitant]

REACTIONS (4)
  - DIARRHOEA [None]
  - MUSCULOSKELETAL STIFFNESS [None]
  - NAUSEA [None]
  - VOMITING [None]
